FAERS Safety Report 10051071 (Version 2)
Quarter: 2014Q2

REPORT INFORMATION
  Report Type: Spontaneous
  Country: CH (occurrence: CH)
  Receive Date: 20140401
  Receipt Date: 20140415
  Transmission Date: 20141212
  Serious: Yes (Hospitalization, Other)
  Sender: FDA-Public Use
  Company Number: CH-PFIZER INC-2014089757

PATIENT
  Age: 62 Year
  Sex: Female
  Weight: 102 kg

DRUGS (15)
  1. XELJANZ [Suspect]
     Indication: RHEUMATOID ARTHRITIS
     Dosage: 5 MG, 2X/DAY
     Route: 048
     Dates: start: 20131123, end: 20140225
  2. METHOTREXATE [Concomitant]
     Indication: RHEUMATOID ARTHRITIS
     Dosage: 25 MG, WEEKLY
     Route: 058
     Dates: start: 1999
  3. SPIRICORT [Concomitant]
     Dosage: UNK
  4. SPIRICORT [Concomitant]
     Dosage: 5 MG, DAILY
     Route: 048
     Dates: start: 201402
  5. ASPIRIN CARDIO [Concomitant]
  6. PANTOPRAZOL [Concomitant]
  7. VENLAFAXINE [Concomitant]
  8. QUETIAPINE [Concomitant]
  9. SIFROL [Concomitant]
  10. EUTHYROX [Concomitant]
  11. ACIDUM FOLICUM [Concomitant]
  12. METOPROLOL [Concomitant]
  13. TORASEMIDE [Concomitant]
  14. FORSTEO [Concomitant]
  15. CALCIMAGON [Concomitant]

REACTIONS (1)
  - Herpes simplex pharyngitis [Recovered/Resolved]
